FAERS Safety Report 21423393 (Version 4)
Quarter: 2023Q1

REPORT INFORMATION
  Report Type: Report from Study
  Country: US (occurrence: US)
  Receive Date: 20221007
  Receipt Date: 20230112
  Transmission Date: 20230418
  Serious: Yes (Hospitalization, Other)
  Sender: FDA-Public Use
  Company Number: US-GILEAD-2022-0600369

PATIENT
  Sex: Male
  Weight: 112.2 kg

DRUGS (10)
  1. SACITUZUMAB GOVITECAN [Suspect]
     Active Substance: SACITUZUMAB GOVITECAN
     Indication: Transitional cell carcinoma
     Dosage: 7.5 MG/KG ON D1 AND D8
     Route: 042
     Dates: start: 20220928
  2. CISPLATIN [Suspect]
     Active Substance: CISPLATIN
     Indication: Transitional cell carcinoma
     Dosage: 70 MG/KG ON D1
     Route: 042
     Dates: start: 20220928
  3. NORTRIPTYLINE [Concomitant]
     Active Substance: NORTRIPTYLINE
     Indication: Trigeminal neuralgia
     Dosage: UNK
     Dates: start: 201606
  4. OXCARBAZEPINE [Concomitant]
     Active Substance: OXCARBAZEPINE
     Indication: Trigeminal neuralgia
     Dosage: UNK
     Dates: start: 201606
  5. PREGABALIN [Concomitant]
     Active Substance: PREGABALIN
     Indication: Trigeminal neuralgia
     Dosage: UNK
     Dates: start: 201606
  6. TIZANIDINE [Concomitant]
     Active Substance: TIZANIDINE
     Indication: Trigeminal neuralgia
     Dosage: UNK
     Dates: start: 201606
  7. TAMSULOSIN [Concomitant]
     Active Substance: TAMSULOSIN
     Indication: Hypertonic bladder
     Dosage: UNK
     Dates: start: 201809
  8. TROSPIUM CHLORIDE [Concomitant]
     Active Substance: TROSPIUM CHLORIDE
     Indication: Hypertonic bladder
     Dosage: UNK
     Dates: start: 201809
  9. MIRABEGRON [Concomitant]
     Active Substance: MIRABEGRON
     Indication: Hypertonic bladder
     Dosage: UNK
     Dates: start: 201809
  10. VITAMIN D3 [Concomitant]
     Active Substance: CHOLECALCIFEROL
     Indication: Supplementation therapy
     Dosage: UNK
     Dates: start: 202110

REACTIONS (1)
  - Syncope [Recovered/Resolved]

NARRATIVE: CASE EVENT DATE: 20221003
